FAERS Safety Report 6115832-1 (Version None)
Quarter: 2009Q1

REPORT INFORMATION
  Report Type: 
  Country: None (occurrence: None)
  Receive Date: 20090311
  Receipt Date: 20090226
  Transmission Date: 20090719
  Serious: Yes (Hospitalization, Other)
  Sender: FDA-Public Use
  Company Number: 230284K09USA

PATIENT
  Age: 59 Year
  Sex: Female
  Weight: 117 kg

DRUGS (21)
  1. REBIF [Suspect]
     Indication: MULTIPLE SCLEROSIS
     Dosage: 44 MCG, 3 IN 1 WEEKS, SUBCUTANEOUS; 22 MCG, 3 IN 1 WEEKS, SUBCUTANEOUS
     Route: 058
     Dates: start: 20041201, end: 20081101
  2. REBIF [Suspect]
     Indication: MULTIPLE SCLEROSIS
     Dosage: 44 MCG, 3 IN 1 WEEKS, SUBCUTANEOUS; 22 MCG, 3 IN 1 WEEKS, SUBCUTANEOUS
     Route: 058
     Dates: start: 20081101
  3. TIZANIDINE HCL [Concomitant]
  4. LIPITOR [Concomitant]
  5. BACLOFEN [Concomitant]
  6. LEXAPRO [Concomitant]
  7. CLONIDINE [Concomitant]
  8. OXYBUTYNIN CHLORIDE [Concomitant]
  9. CALCIUM (CALCIUM-SANDOZ) [Concomitant]
  10. MULTI-VITAMINS [Concomitant]
  11. ASPIRIN [Concomitant]
  12. NASONEX [Concomitant]
  13. ALBUTEROL [Concomitant]
  14. SINGULAIR [Concomitant]
  15. PRIMIDONE [Concomitant]
  16. RANITIDINE [Concomitant]
  17. MEGA OMEGA 3 (FISH OIL) [Concomitant]
  18. IBUPROFEN [Concomitant]
  19. HYDROCHLOROTHIAZIDE [Concomitant]
  20. ADVAIR HFA [Concomitant]
  21. NEURONTIN [Concomitant]

REACTIONS (4)
  - DIABETES MELLITUS [None]
  - FRACTURE NONUNION [None]
  - OXYGEN SATURATION DECREASED [None]
  - STRESS FRACTURE [None]
